FAERS Safety Report 5421868-6 (Version None)
Quarter: 2007Q3

REPORT INFORMATION
  Report Type: 
  Country: None (occurrence: None)
  Receive Date: 20070817
  Receipt Date: 20070726
  Transmission Date: 20080115
  Serious: Yes (Other)
  Sender: FDA-Public Use
  Company Number: 2007RR-09005

PATIENT
  Age: 55 Year
  Sex: Male

DRUGS (1)
  1. DOXYCYCLINE [Suspect]
     Indication: PYREXIA
     Dosage: 100 MG, BID, ORAL
     Route: 048

REACTIONS (3)
  - DRUG INEFFECTIVE [None]
  - FACIAL PAIN [None]
  - PARAESTHESIA [None]
